FAERS Safety Report 5592697-8 (Version None)
Quarter: 2008Q1

REPORT INFORMATION
  Report Type: 
  Country: None (occurrence: None)
  Receive Date: 20080114
  Receipt Date: 20071231
  Transmission Date: 20080703
  Serious: Yes (Hospitalization, Other)
  Sender: FDA-Public Use
  Company Number: 231695J07USA

PATIENT
  Age: 54 Year
  Sex: Female

DRUGS (3)
  1. REBIF [Suspect]
     Indication: MULTIPLE SCLEROSIS
     Dosage: 44 MCG, 3 IN 1 WEEKS, SUBCUTANEOUS
     Route: 058
     Dates: start: 20040206
  2. NAPROSYN [Suspect]
  3. STEROIDS                       (CORTICOSTEROIDS FOR SYSTEMIC USE) [Suspect]
     Dosage: INTRAVENOUS
     Route: 042

REACTIONS (5)
  - ABDOMINAL PAIN [None]
  - HAEMATEMESIS [None]
  - INJECTION SITE ERYTHEMA [None]
  - ULCER HAEMORRHAGE [None]
  - VOMITING [None]
